FAERS Safety Report 22316781 (Version 1)
Quarter: 2023Q2

REPORT INFORMATION
  Report Type: Spontaneous
  Country: US (occurrence: US)
  Receive Date: 20230513
  Receipt Date: 20230513
  Transmission Date: 20230722
  Serious: Yes (Other)
  Sender: FDA-Public Use
  Company Number: US-002147023-NVSC2023US106957

PATIENT

DRUGS (1)
  1. KYMRIAH [Suspect]
     Active Substance: TISAGENLECLEUCEL
     Indication: Product used for unknown indication
     Dosage: 1 ML, ONCE/SINGLE (2.2 X 10E8 CAR-POSITIVE VIABLE T CELLS)
     Route: 042
     Dates: start: 20221212, end: 20221212

REACTIONS (1)
  - Post-depletion B-cell recovery [Unknown]
